APPROVED DRUG PRODUCT: GLIPIZIDE
Active Ingredient: GLIPIZIDE
Strength: 5MG
Dosage Form/Route: TABLET, EXTENDED RELEASE;ORAL
Application: A203499 | Product #002 | TE Code: AB
Applicant: ZYDUS PHARMACEUTICALS USA INC
Approved: Jul 16, 2018 | RLD: No | RS: No | Type: RX